FAERS Safety Report 12929592 (Version 1)
Quarter: 2016Q4

REPORT INFORMATION
  Report Type: Spontaneous
  Country: FR (occurrence: FR)
  Receive Date: 20161110
  Receipt Date: 20161110
  Transmission Date: 20170207
  Serious: Yes (Other)
  Sender: FDA-Public Use
  Company Number: FR-PFIZER INC-2016511416

PATIENT
  Age: 25 Year
  Sex: Female

DRUGS (6)
  1. BACTRIM [Suspect]
     Active Substance: SULFAMETHOXAZOLE\TRIMETHOPRIM
     Indication: TRANSPLANT
     Dosage: 800 MG, 3X/WEEK
     Route: 048
     Dates: start: 20160915
  2. NEORAL [Suspect]
     Active Substance: CYCLOSPORINE
     Indication: TRANSPLANT
     Dosage: 75 MG, 2X/DAY
     Route: 048
     Dates: start: 20160915
  3. AMOXICILLIN. [Suspect]
     Active Substance: AMOXICILLIN
     Indication: TRANSPLANT
     Dosage: 500 MG, 3X/DAY
     Route: 048
     Dates: start: 20160915
  4. ZELITREX [Suspect]
     Active Substance: VALACYCLOVIR HYDROCHLORIDE
     Indication: TRANSPLANT
     Dosage: 500 MG, 2X/DAY
     Route: 048
     Dates: start: 20160915
  5. URSOLVAN [Suspect]
     Active Substance: URSODIOL
     Indication: TRANSPLANT
     Dosage: 200 MG, 3X/DAY
     Route: 048
     Dates: start: 20160915
  6. TRIFLUCAN [Suspect]
     Active Substance: FLUCONAZOLE
     Indication: TRANSPLANT
     Dosage: 400 MG, 1X/DAY
     Route: 048
     Dates: start: 20160915

REACTIONS (7)
  - Dyspnoea [Not Recovered/Not Resolved]
  - Paraesthesia [Not Recovered/Not Resolved]
  - Diarrhoea [Recovered/Resolved]
  - Weight decreased [Not Recovered/Not Resolved]
  - Skin discolouration [Not Recovered/Not Resolved]
  - Nausea [Recovered/Resolved]
  - Pruritus generalised [Not Recovered/Not Resolved]

NARRATIVE: CASE EVENT DATE: 20160915
